FAERS Safety Report 10043705 (Version 1)
Quarter: 2014Q1

REPORT INFORMATION
  Report Type: Spontaneous
  Country: US (occurrence: None)
  Receive Date: 20140327
  Receipt Date: 20140327
  Transmission Date: 20141002
  Serious: Yes (Hospitalization)
  Sender: FDA-Public Use
  Company Number: None

PATIENT
  Age: 13 Year
  Sex: Male
  Weight: 50.9 kg

DRUGS (19)
  1. CLOFAZIMINE [Suspect]
     Route: 048
     Dates: start: 20140201, end: 20140310
  2. CLOFAZIMINE [Suspect]
     Indication: BRONCHOPNEUMONIA
     Route: 048
     Dates: start: 20140201, end: 20140310
  3. TIGECYCLINE [Suspect]
     Indication: CYSTIC FIBROSIS
     Route: 042
     Dates: start: 20140314
  4. ALBUTEROL [Concomitant]
  5. HYPERTONIC SALINE [Concomitant]
  6. PULMOZYME [Concomitant]
  7. SINUSRINSE [Concomitant]
  8. FLONASE [Concomitant]
  9. ZYRTEC [Concomitant]
  10. CREON [Concomitant]
  11. PREVACID [Concomitant]
  12. CHOICEFUL ADEK [Concomitant]
  13. MIRALAX [Concomitant]
  14. MARINOL [Concomitant]
  15. PEDIASURE [Concomitant]
  16. OXEPA PULMICARE [Concomitant]
  17. XOLAIR [Concomitant]
  18. VORICONAZOLE [Concomitant]
  19. IMITREX [Concomitant]

REACTIONS (5)
  - Nausea [None]
  - Vomiting [None]
  - Abdominal pain upper [None]
  - Heart rate increased [None]
  - Dehydration [None]
